FAERS Safety Report 18946715 (Version 8)
Quarter: 2022Q2

REPORT INFORMATION
  Report Type: Report from Study
  Country: US (occurrence: US)
  Receive Date: 20210226
  Receipt Date: 20220415
  Transmission Date: 20220721
  Serious: Yes (Other)
  Sender: FDA-Public Use
  Company Number: NVSC2021US038730

PATIENT
  Sex: Female
  Weight: 16.327 kg

DRUGS (1)
  1. ILARIS [Suspect]
     Active Substance: CANAKINUMAB
     Indication: Still^s disease
     Dosage: 40 MG( 1 G 28 D)
     Route: 058
     Dates: start: 20210527

REACTIONS (5)
  - Rheumatoid arthritis [Unknown]
  - Condition aggravated [Unknown]
  - Rhinovirus infection [Unknown]
  - Cough [Unknown]
  - Rhinorrhoea [Unknown]
